FAERS Safety Report 5495816-7 (Version None)
Quarter: 2007Q4

REPORT INFORMATION
  Report Type: 
  Country: None (occurrence: None)
  Receive Date: 20071025
  Receipt Date: 20070102
  Transmission Date: 20080405
  Serious: No
  Sender: FDA-Public Use
  Company Number: A0625051A

PATIENT
  Age: 78 Year
  Sex: Female

DRUGS (9)
  1. ADVAIR DISKUS 100/50 [Suspect]
     Indication: CHRONIC OBSTRUCTIVE PULMONARY DISEASE
     Dosage: 1PUFF TWICE PER DAY
     Route: 055
     Dates: start: 20060401
  2. ISORDIL [Concomitant]
  3. UNKNOWN MEDICATION [Concomitant]
  4. HYDROXYUREA [Concomitant]
  5. DILTIAZEM [Concomitant]
  6. DETROL [Concomitant]
  7. AMBIEN [Concomitant]
  8. NASONEX [Concomitant]
  9. COMBIVENT [Concomitant]

REACTIONS (1)
  - HAIR DISORDER [None]
